FAERS Safety Report 6388770-7 (Version None)
Quarter: 2009Q4

REPORT INFORMATION
  Report Type: 
  Country: None (occurrence: None)
  Receive Date: 20091005
  Receipt Date: 20090924
  Transmission Date: 20100525
  Serious: Yes (Other)
  Sender: FDA-Public Use
  Company Number: US-PFIZER INC-2005066968

PATIENT
  Sex: Female

DRUGS (7)
  1. PROVERA [Suspect]
     Indication: HORMONE REPLACEMENT THERAPY
     Route: 065
  2. PREMARIN [Suspect]
     Indication: HORMONE REPLACEMENT THERAPY
     Dosage: 0.625 MG, UNK
     Route: 065
  3. PREMARIN [Suspect]
     Indication: MENOPAUSAL SYMPTOMS
  4. PREMPRO [Suspect]
     Indication: HORMONE REPLACEMENT THERAPY
     Dosage: 0.625MG/2.5MG
     Route: 065
     Dates: end: 20020601
  5. PREMPRO [Suspect]
     Indication: MENOPAUSAL SYMPTOMS
  6. PRINIVIL [Concomitant]
     Indication: HYPERTENSION
     Dosage: 10 MG, UNK
     Dates: start: 19950101
  7. SYNTHROID [Concomitant]
     Indication: THYROID DISORDER
     Dosage: 0.05 MG, UNK
     Dates: start: 20001201

REACTIONS (1)
  - BREAST CANCER FEMALE [None]
